FAERS Safety Report 4792889-1 (Version None)
Quarter: 2005Q4

REPORT INFORMATION
  Report Type: 
  Country: None (occurrence: None)
  Receive Date: 20051010
  Receipt Date: 20050822
  Transmission Date: 20060501
  Serious: Yes (Other)
  Sender: FDA-Public Use
  Company Number: PHHO2005AU13111

PATIENT
  Age: 70 Year
  Sex: Male

DRUGS (4)
  1. ZOLEDRONIC ACID [Suspect]
     Indication: METASTASES TO BONE
     Dosage: 4 MG, Q3MO
     Route: 042
     Dates: start: 20041018, end: 20050714
  2. LUCRIN [Concomitant]
     Indication: PROSTATE CANCER
     Dosage: 22.5 MG, Q3MO
     Route: 030
     Dates: start: 20041012, end: 20050110
  3. RADIOTHERAPY [Concomitant]
     Indication: PROSTATE CANCER
     Dosage: 2 GY PER FRACTION
     Dates: start: 20050317, end: 20050516
  4. MULTIVITAMIN PREPARATIONS WITH OR W/O MINERAL [Concomitant]

REACTIONS (7)
  - BONE LESION [None]
  - DISCOMFORT [None]
  - GINGIVAL INFECTION [None]
  - GINGIVAL PAIN [None]
  - OSTEOMYELITIS [None]
  - OSTEONECROSIS [None]
  - SOFT TISSUE INFECTION [None]
